FAERS Safety Report 25769129 (Version 1)
Quarter: 2025Q3

REPORT INFORMATION
  Report Type: Spontaneous
  Country: US (occurrence: US)
  Receive Date: 20250905
  Receipt Date: 20250905
  Transmission Date: 20251021
  Serious: Yes (Death, Life-Threatening, Other)
  Sender: AMGEN
  Company Number: US-AMGEN-USASP2025172408

PATIENT

DRUGS (7)
  1. CARFILZOMIB [Suspect]
     Active Substance: CARFILZOMIB
     Indication: Plasma cell myeloma refractory
     Route: 065
  2. BORTEZOMIB [Suspect]
     Active Substance: BORTEZOMIB
     Indication: Plasma cell myeloma refractory
     Route: 065
  3. IXAZOMIB [Suspect]
     Active Substance: IXAZOMIB
     Indication: Plasma cell myeloma refractory
     Route: 065
  4. POMALIDOMIDE [Suspect]
     Active Substance: POMALIDOMIDE
     Indication: Plasma cell myeloma refractory
     Route: 065
  5. THALIDOMIDE [Suspect]
     Active Substance: THALIDOMIDE
     Indication: Plasma cell myeloma refractory
     Route: 065
  6. LENALIDOMIDE [Suspect]
     Active Substance: LENALIDOMIDE
     Indication: Plasma cell myeloma refractory
     Route: 048
  7. DEXAMETHASONE [Suspect]
     Active Substance: DEXAMETHASONE
     Indication: Plasma cell myeloma refractory
     Route: 048

REACTIONS (58)
  - Sepsis [Fatal]
  - Plasma cell myeloma [Fatal]
  - Gastrointestinal haemorrhage [Fatal]
  - Neutropenia [Fatal]
  - Death [Fatal]
  - Lymphocyte count decreased [Unknown]
  - Platelet count decreased [Unknown]
  - Urinary tract infection [Unknown]
  - Alanine aminotransferase increased [Unknown]
  - Anaemia [Unknown]
  - Febrile neutropenia [Unknown]
  - Cytopenia [Unknown]
  - Cellulitis [Unknown]
  - Fatigue [Unknown]
  - Aspartate aminotransferase increased [Unknown]
  - Chest pain [Unknown]
  - COVID-19 [Unknown]
  - Pneumonia [Unknown]
  - Chronic kidney disease [Unknown]
  - Blood bilirubin increased [Unknown]
  - Skin infection [Unknown]
  - Pleural effusion [Unknown]
  - Hypokalaemia [Unknown]
  - Soft tissue infection [Unknown]
  - Hypocalcaemia [Unknown]
  - Hepatitis [Unknown]
  - Upper respiratory tract infection [Unknown]
  - Sinusitis [Unknown]
  - Blood alkaline phosphatase increased [Unknown]
  - Dehydration [Unknown]
  - Diarrhoea [Unknown]
  - Confusional state [Unknown]
  - Conjunctivitis [Unknown]
  - Back pain [Unknown]
  - Dyspepsia [Unknown]
  - Dyspnoea [Unknown]
  - Hypoalbuminaemia [Unknown]
  - Face oedema [Unknown]
  - Abdominal pain [Unknown]
  - Gastrooesophageal reflux disease [Unknown]
  - Muscular weakness [Unknown]
  - Myalgia [Unknown]
  - Decreased appetite [Unknown]
  - Nail infection [Unknown]
  - Blood creatinine increased [Unknown]
  - Insomnia [Unknown]
  - Nasal congestion [Unknown]
  - Pain in extremity [Unknown]
  - Rash maculo-papular [Unknown]
  - Sinus tachycardia [Unknown]
  - Somnolence [Unknown]
  - Weight decreased [Unknown]
  - Hypophosphataemia [Unknown]
  - Hypotension [Unknown]
  - Constipation [Unknown]
  - White blood cell count decreased [Unknown]
  - Escherichia urinary tract infection [Unknown]
  - Therapy non-responder [Unknown]
